FAERS Safety Report 20741214 (Version 13)
Quarter: 2025Q2

REPORT INFORMATION
  Report Type: Spontaneous
  Country: US (occurrence: US)
  Receive Date: 20220422
  Receipt Date: 20250402
  Transmission Date: 20250716
  Serious: Yes (Hospitalization, Other)
  Sender: PFIZER
  Company Number: US-PFIZER INC-202200584907

PATIENT
  Age: 80 Year
  Sex: Male

DRUGS (5)
  1. XELJANZ [Suspect]
     Active Substance: TOFACITINIB CITRATE
     Indication: Rheumatoid arthritis
  2. XELJANZ [Suspect]
     Active Substance: TOFACITINIB CITRATE
     Indication: Osteoarthritis
     Dosage: 5 MG, 1X/DAY
  3. XELJANZ [Suspect]
     Active Substance: TOFACITINIB CITRATE
     Dosage: 5 MG, DAILY
  4. TYLENOL [Concomitant]
     Active Substance: ACETAMINOPHEN
  5. VITAMIN D3 [Concomitant]
     Active Substance: CHOLECALCIFEROL

REACTIONS (17)
  - Pneumonia [Unknown]
  - COVID-19 [Unknown]
  - Post procedural infection [Unknown]
  - Mental impairment [Unknown]
  - Prostatic disorder [Unknown]
  - Influenza [Unknown]
  - Hypoacusis [Recovering/Resolving]
  - Renal disorder [Unknown]
  - Asthenia [Unknown]
  - Illness [Not Recovered/Not Resolved]
  - Fatigue [Unknown]
  - Loss of personal independence in daily activities [Unknown]
  - Headache [Unknown]
  - Drug ineffective [Unknown]
  - Overdose [Unknown]
  - Arthralgia [Not Recovered/Not Resolved]
  - Intentional product misuse [Unknown]

NARRATIVE: CASE EVENT DATE: 20231001
